FAERS Safety Report 6404385-6 (Version None)
Quarter: 2009Q4

REPORT INFORMATION
  Report Type: 
  Country: None (occurrence: None)
  Receive Date: 20091016
  Receipt Date: 20091008
  Transmission Date: 20100525
  Serious: Yes (Hospitalization, Other)
  Sender: FDA-Public Use
  Company Number: CA-ABBOTT-09P-028-0602215-00

PATIENT
  Sex: Female
  Weight: 62.652 kg

DRUGS (10)
  1. HUMIRA [Suspect]
     Indication: CROHN'S DISEASE
     Route: 058
     Dates: start: 20090217, end: 20090501
  2. SOLU-CORTEF [Suspect]
     Indication: DRUG USE FOR UNKNOWN INDICATION
  3. DOMPERIDONE [Concomitant]
     Indication: DRUG USE FOR UNKNOWN INDICATION
     Dosage: 10 MG 1 CAPSULE
     Route: 048
  4. NOVO-PANTOPRAZOLE [Concomitant]
     Indication: DRUG USE FOR UNKNOWN INDICATION
     Dosage: 40 MG 1 CAPSULE
     Route: 048
  5. LIQUICAL-D [Concomitant]
     Indication: DRUG USE FOR UNKNOWN INDICATION
     Dosage: 400 MG I.U./ 500 MG ONE CAPSULE
     Route: 048
  6. LORAZEPAM [Concomitant]
     Indication: DRUG USE FOR UNKNOWN INDICATION
  7. TRAZODONE [Concomitant]
     Indication: DRUG USE FOR UNKNOWN INDICATION
     Dosage: 50 MG 1 CAPSULE
     Route: 048
  8. CITALOPRAM HYDROBROMIDE [Concomitant]
     Indication: DRUG USE FOR UNKNOWN INDICATION
     Dosage: 20 MG ONE CAPSULE
     Route: 048
  9. PMS-FERROUS SULFATE [Concomitant]
     Indication: DRUG USE FOR UNKNOWN INDICATION
     Dosage: 300 MG ONE CAPSULE
     Route: 048
  10. ENTOCORT EC [Concomitant]
     Indication: DRUG USE FOR UNKNOWN INDICATION

REACTIONS (13)
  - ANTINUCLEAR ANTIBODY POSITIVE [None]
  - CANDIDIASIS [None]
  - CLOSTRIDIAL INFECTION [None]
  - CROHN'S DISEASE [None]
  - ENDOMETRIOSIS [None]
  - FEELING COLD [None]
  - MENORRHAGIA [None]
  - PARAESTHESIA [None]
  - POLYP [None]
  - PRURITUS [None]
  - PYELONEPHRITIS [None]
  - URINARY TRACT INFECTION [None]
  - UTERINE LEIOMYOMA [None]
